FAERS Safety Report 16002482 (Version 3)
Quarter: 2019Q2

REPORT INFORMATION
  Report Type: Spontaneous
  Country: JP (occurrence: JP)
  Receive Date: 20190225
  Receipt Date: 20190503
  Transmission Date: 20190711
  Serious: Yes (Hospitalization)
  Sender: FDA-Public Use
  Company Number: JP-ROCHE-2270387

PATIENT
  Sex: Female

DRUGS (3)
  1. CELECOX [Concomitant]
     Active Substance: CELECOXIB
     Route: 065
     Dates: start: 20170727
  2. EDIROL [Suspect]
     Active Substance: ELDECALCITOL
     Indication: OSTEOPOROSIS
     Route: 048
     Dates: start: 20170727
  3. BONVIVA [Suspect]
     Active Substance: IBANDRONATE SODIUM
     Indication: OSTEOPOROSIS
     Route: 042
     Dates: start: 20170727, end: 20180820

REACTIONS (1)
  - Renal impairment [Recovering/Resolving]
